FAERS Safety Report 4818448-X (Version None)
Quarter: 2005Q4

REPORT INFORMATION
  Report Type: 
  Country: None (occurrence: None)
  Receive Date: 20051102
  Receipt Date: 20051020
  Transmission Date: 20060501
  Serious: Yes (Other)
  Sender: FDA-Public Use
  Company Number: PHBS2005IT15613

PATIENT
  Age: 48 Year
  Sex: Female

DRUGS (5)
  1. PAMIDRONATE DISODIUM [Suspect]
     Indication: NON-HODGKIN'S LYMPHOMA
     Route: 042
  2. ZOLEDRONATE [Suspect]
     Route: 042
  3. CHLORAMBUCIL [Concomitant]
     Route: 065
  4. CYCLOPHOSPHAMIDE + VINCRISTINE [Concomitant]
     Route: 065
  5. PREDNISONE [Concomitant]
     Route: 065

REACTIONS (11)
  - BONE DEBRIDEMENT [None]
  - BONE DISORDER [None]
  - BONE PAIN [None]
  - OSTEOMYELITIS [None]
  - OSTEOMYELITIS CHRONIC [None]
  - OSTEONECROSIS [None]
  - PERIODONTAL DISEASE [None]
  - PRIMARY SEQUESTRUM [None]
  - SEQUESTRECTOMY [None]
  - TOOTH EXTRACTION [None]
  - WOUND TREATMENT [None]
